FAERS Safety Report 20070795 (Version 1)
Quarter: 2021Q4

REPORT INFORMATION
  Report Type: Spontaneous
  Country: US (occurrence: None)
  Receive Date: 20211115
  Receipt Date: 20211115
  Transmission Date: 20220303
  Serious: No
  Sender: FDA-Public Use
  Company Number: None

PATIENT
  Age: 87 Year
  Sex: Female
  Weight: 58.06 kg

DRUGS (12)
  1. DEFERASIROX [Suspect]
     Active Substance: DEFERASIROX
     Indication: Haemochromatosis
     Dosage: FREQUENCY : DAILY;?
     Route: 048
  2. AMLODIPINE BESYLATE [Concomitant]
     Active Substance: AMLODIPINE BESYLATE
  3. BIOTIN [Concomitant]
     Active Substance: BIOTIN
  4. BYSTOLIC [Concomitant]
     Active Substance: NEBIVOLOL HYDROCHLORIDE
  5. FUROSEMIDE [Concomitant]
     Active Substance: FUROSEMIDE
  6. HYDRALAZINE HCL [Concomitant]
     Active Substance: HYDRALAZINE HYDROCHLORIDE
  7. HYDROCHLOROTHIAZIDE [Concomitant]
     Active Substance: HYDROCHLOROTHIAZIDE
  8. ACETAMINOPHEN\HYDROCODONE [Concomitant]
     Active Substance: ACETAMINOPHEN\HYDROCODONE
  9. ISOSORBIDE MONONITRATE [Concomitant]
     Active Substance: ISOSORBIDE MONONITRATE
  10. JADENU [Concomitant]
     Active Substance: DEFERASIROX
  11. LEVEMIR [Concomitant]
     Active Substance: INSULIN DETEMIR
  12. LOSARTAN [Concomitant]
     Active Substance: LOSARTAN

REACTIONS (1)
  - Hospitalisation [None]

NARRATIVE: CASE EVENT DATE: 20211115
